FAERS Safety Report 8594952 (Version 4)
Quarter: 2013Q2

REPORT INFORMATION
  Report Type: Spontaneous
  Country: US (occurrence: US)
  Receive Date: 20120604
  Receipt Date: 20130410
  Transmission Date: 20140414
  Serious: No
  Sender: FDA-Public Use
  Company Number: US-ASTRAZENECA-2012SE17199

PATIENT
  Age: 48 Year
  Sex: Female

DRUGS (1)
  1. NEXIUM [Suspect]
     Route: 048

REACTIONS (7)
  - Dysphonia [Unknown]
  - Sinus disorder [Unknown]
  - Eye disorder [Unknown]
  - Chest pain [Unknown]
  - Stress [Unknown]
  - Malaise [Unknown]
  - Drug dose omission [Unknown]
